FAERS Safety Report 16792722 (Version 3)
Quarter: 2020Q2

REPORT INFORMATION
  Report Type: Spontaneous
  Country: CZ (occurrence: SK)
  Receive Date: 20190910
  Receipt Date: 20200629
  Transmission Date: 20200713
  Serious: Yes (Death, Hospitalization, Other)
  Sender: FDA-Public Use
  Company Number: PHHY2019CZ208228

PATIENT
  Age: 57 Year
  Sex: Male

DRUGS (11)
  1. MYCOPHENOLATE MOFETIL. [Suspect]
     Active Substance: MYCOPHENOLATE MOFETIL
     Dosage: ORAL, QD
     Route: 048
     Dates: start: 2010, end: 20160229
  2. CYCLOPHOSPHAMIDE. [Suspect]
     Active Substance: CYCLOPHOSPHAMIDE
     Indication: SYSTEMIC LUPUS ERYTHEMATOSUS
     Dosage: UNK
     Route: 065
  3. BELIMUMAB [Suspect]
     Active Substance: BELIMUMAB
     Dosage: UNK
     Route: 042
     Dates: start: 20140401, end: 20151103
  4. CICLOSPORIN [Suspect]
     Active Substance: CYCLOSPORINE
     Indication: SYSTEMIC LUPUS ERYTHEMATOSUS
     Dosage: UNK
     Route: 065
  5. METHOTREXATE. [Suspect]
     Active Substance: METHOTREXATE
     Indication: SYSTEMIC LUPUS ERYTHEMATOSUS
     Dosage: UNK
     Route: 065
  6. AZATHIOPRINE. [Suspect]
     Active Substance: AZATHIOPRINE
     Indication: SYSTEMIC LUPUS ERYTHEMATOSUS
     Dosage: UNK
     Route: 065
  7. BELIMUMAB [Suspect]
     Active Substance: BELIMUMAB
     Indication: SYSTEMIC LUPUS ERYTHEMATOSUS
     Dosage: UNK
     Route: 065
     Dates: start: 201504
  8. PREDNISONE. [Suspect]
     Active Substance: PREDNISONE
     Dosage: 12.5 MG, QD
     Route: 065
     Dates: start: 2014, end: 20160301
  9. MYCOPHENOLATE MOFETIL. [Suspect]
     Active Substance: MYCOPHENOLATE MOFETIL
     Indication: SYSTEMIC LUPUS ERYTHEMATOSUS
     Dosage: UNK
     Route: 065
  10. PREDNISONE. [Suspect]
     Active Substance: PREDNISONE
     Dosage: 15-20 MG
     Route: 065
     Dates: start: 2003, end: 2014
  11. PREDNISONE. [Suspect]
     Active Substance: PREDNISONE
     Indication: SYSTEMIC LUPUS ERYTHEMATOSUS
     Dosage: UNK
     Route: 065

REACTIONS (16)
  - Dizziness [Fatal]
  - Mental disorder [Fatal]
  - Progressive multifocal leukoencephalopathy [Fatal]
  - Brain stem syndrome [Fatal]
  - Lymphopenia [Fatal]
  - Pneumonia [Fatal]
  - Magnetic resonance imaging brain abnormal [Fatal]
  - Hypotension [Fatal]
  - Speech disorder [Fatal]
  - CD4 lymphocytes decreased [Fatal]
  - Cardiac arrest [Fatal]
  - Limb discomfort [Fatal]
  - Acute respiratory failure [Fatal]
  - Progressive bulbar palsy [Fatal]
  - Cerebral infarction [Fatal]
  - Arrhythmia [Fatal]

NARRATIVE: CASE EVENT DATE: 201602
